FAERS Safety Report 16446062 (Version 1)
Quarter: 2019Q2

REPORT INFORMATION
  Report Type: Spontaneous
  Country: US (occurrence: US)
  Receive Date: 20190618
  Receipt Date: 20190618
  Transmission Date: 20190711
  Serious: Yes (Other)
  Sender: FDA-Public Use
  Company Number: US-ALLERGAN-1681835US

PATIENT
  Sex: Female

DRUGS (4)
  1. REFRESH PLUS [Suspect]
     Active Substance: CARBOXYMETHYLCELLULOSE SODIUM
     Dosage: 5-6 TIMES PER DAY
     Route: 047
  2. REFRESH PLUS [Suspect]
     Active Substance: CARBOXYMETHYLCELLULOSE SODIUM
     Indication: DRY EYE
     Dosage: 5-6 TIMES PER DAY
     Route: 047
     Dates: start: 20190614
  3. LUBRICANT EYE DROPS [Concomitant]
     Active Substance: POLYETHYLENE GLYCOL 400\PROPYLENE GLYCOL
     Indication: DRY EYE
     Dosage: UNK
     Route: 047
  4. REFRESH PLUS [Suspect]
     Active Substance: CARBOXYMETHYLCELLULOSE SODIUM
     Dosage: 5-6 TIMES PER DAY
     Route: 047
     Dates: start: 1989

REACTIONS (6)
  - Hypersensitivity [Not Recovered/Not Resolved]
  - Product dropper issue [Unknown]
  - Non-Hodgkin^s lymphoma [Recovered/Resolved]
  - Accidental exposure to product [Unknown]
  - Eye irritation [Recovering/Resolving]
  - Hypertension [Not Recovered/Not Resolved]

NARRATIVE: CASE EVENT DATE: 2014
